FAERS Safety Report 16384463 (Version 2)
Quarter: 2019Q2

REPORT INFORMATION
  Report Type: Spontaneous
  Country: TR (occurrence: TR)
  Receive Date: 20190603
  Receipt Date: 20190619
  Transmission Date: 20190711
  Serious: Yes (Hospitalization, Other)
  Sender: FDA-Public Use
  Company Number: TR-SA-2019SA146601

PATIENT
  Age: 39 Year
  Sex: Female

DRUGS (2)
  1. TAMSULOSIN HYDROCHLORIDE. [Suspect]
     Active Substance: TAMSULOSIN HYDROCHLORIDE
     Indication: URINARY RETENTION
     Dosage: UNK, QD
     Route: 048
     Dates: start: 20180611
  2. RITUXIMAB. [Concomitant]
     Active Substance: RITUXIMAB
     Indication: MULTIPLE SCLEROSIS
     Dosage: ONCE EVERY 6 MONTHS, IN THE LAST 2 YEARS

REACTIONS (5)
  - Demyelination [Recovering/Resolving]
  - Galactorrhoea [Recovered/Resolved]
  - Blood prolactin increased [Recovered/Resolved]
  - Hypoaesthesia [Recovering/Resolving]
  - Hyperprolactinaemia [Recovered/Resolved]

NARRATIVE: CASE EVENT DATE: 20180615
